FAERS Safety Report 11507978 (Version 1)
Quarter: 2015Q3

REPORT INFORMATION
  Report Type: Spontaneous
  Country: US (occurrence: US)
  Receive Date: 20150903
  Receipt Date: 20150903
  Transmission Date: 20151125
  Serious: No
  Sender: FDA-Public Use
  Company Number: US-ELI_LILLY_AND_COMPANY-US200910007395

PATIENT
  Sex: Male

DRUGS (4)
  1. HUMALOG [Suspect]
     Active Substance: INSULIN LISPRO
     Dosage: 9 U, DAILY (1/D)
  2. TOPROL XL [Concomitant]
     Active Substance: METOPROLOL SUCCINATE
  3. WARFARIN [Concomitant]
     Active Substance: WARFARIN
  4. ENZYMES [Concomitant]

REACTIONS (3)
  - Intentional product use issue [Recovered/Resolved]
  - Drug ineffective [Recovered/Resolved]
  - Blood glucose increased [Recovered/Resolved]

NARRATIVE: CASE EVENT DATE: 200909
